FAERS Safety Report 6133858-9 (Version None)
Quarter: 2009Q1

REPORT INFORMATION
  Report Type: 
  Country: None (occurrence: None)
  Receive Date: 20090326
  Receipt Date: 20090313
  Transmission Date: 20090719
  Serious: Yes (Death, Life-Threatening, Other)
  Sender: FDA-Public Use
  Company Number: BE-PFIZER INC-2008080582

PATIENT

DRUGS (36)
  1. VFEND [Suspect]
     Indication: ASPERGILLOSIS
     Route: 042
     Dates: start: 20080908, end: 20080908
  2. VFEND [Suspect]
     Route: 042
     Dates: start: 20080909, end: 20080909
  3. VFEND [Suspect]
     Route: 042
     Dates: start: 20080910, end: 20080916
  4. VFEND [Suspect]
     Route: 042
     Dates: start: 20080917, end: 20080917
  5. BLINDED *PLACEBO [Suspect]
     Indication: SYSTEMIC CANDIDA
     Dosage: 200 MG, UNK
     Route: 042
     Dates: start: 20080908, end: 20080908
  6. BLINDED ANIDULAFUNGIN [Suspect]
     Indication: SYSTEMIC CANDIDA
     Dosage: 200 MG, UNK
     Route: 042
     Dates: start: 20080908, end: 20080908
  7. BLINDED *PLACEBO [Suspect]
     Indication: ASPERGILLOSIS
     Dosage: UNK
     Route: 042
     Dates: start: 20080909, end: 20080916
  8. BLINDED ANIDULAFUNGIN [Suspect]
     Indication: ASPERGILLOSIS
     Dosage: UNK
     Route: 042
     Dates: start: 20080909, end: 20080916
  9. DEXTROSE 5% [Concomitant]
     Route: 042
     Dates: start: 20080903
  10. SODIUM CHLORIDE [Concomitant]
     Route: 042
     Dates: start: 20080903
  11. MAGNESIUM SULFATE [Concomitant]
     Route: 042
     Dates: start: 20080904, end: 20081006
  12. NULYTELY [Concomitant]
     Route: 048
     Dates: start: 20080905, end: 20080905
  13. REDOXON [Concomitant]
     Route: 042
     Dates: start: 20080908, end: 20081006
  14. TOCOPHEROL CONCENTRATE CAP [Concomitant]
     Route: 048
     Dates: start: 20080908, end: 20081002
  15. KONAKION [Concomitant]
     Route: 042
     Dates: start: 20080908, end: 20081006
  16. FOLAVIT [Concomitant]
     Route: 048
     Dates: start: 20080904, end: 20080923
  17. POTASSIUM CHLORIDE [Concomitant]
     Route: 042
     Dates: start: 20080906, end: 20080928
  18. MERONEM [Concomitant]
     Route: 042
     Dates: start: 20080903, end: 20080916
  19. VANCOMYCIN HCL [Concomitant]
     Route: 042
     Dates: start: 20080904, end: 20080916
  20. DIFLUCAN [Concomitant]
     Route: 048
     Dates: start: 20080903, end: 20080908
  21. VFEND [Concomitant]
     Route: 042
     Dates: start: 20080908, end: 20080917
  22. ZOVIRAX [Concomitant]
     Route: 042
     Dates: start: 20080905, end: 20080917
  23. DOCACICLO [Concomitant]
     Route: 048
     Dates: start: 20080903, end: 20080904
  24. MORPHINE SULFATE [Concomitant]
     Route: 048
     Dates: start: 20080903, end: 20080923
  25. PARACETAMOL [Concomitant]
     Route: 042
     Dates: start: 20080903, end: 20080926
  26. XANAX [Concomitant]
     Route: 048
     Dates: start: 20080908
  27. REDOMEX [Concomitant]
     Route: 048
     Dates: start: 20080903, end: 20081007
  28. DUOVENT [Concomitant]
     Route: 055
     Dates: start: 20080906, end: 20080910
  29. PARACODINE [Concomitant]
     Route: 048
     Dates: start: 20080903, end: 20081007
  30. LONGIFENE [Concomitant]
     Route: 048
     Dates: start: 20080908, end: 20081007
  31. VALIUM [Concomitant]
     Route: 042
     Dates: start: 20080912, end: 20080916
  32. ALL OTHER THERAPEUTIC PRODUCTS [Concomitant]
     Dates: start: 20080911, end: 20080923
  33. FOSCAVIR [Concomitant]
     Route: 042
     Dates: start: 20080911
  34. PROMETHAZINE [Concomitant]
     Route: 042
     Dates: start: 20080912, end: 20080923
  35. ALBUMIN (HUMAN) [Concomitant]
     Route: 042
     Dates: start: 20080915
  36. NEUPOGEN [Concomitant]
     Route: 042
     Dates: start: 20080915

REACTIONS (2)
  - BLINDNESS [None]
  - BRONCHOPULMONARY ASPERGILLOSIS [None]
